FAERS Safety Report 7186595-6 (Version None)
Quarter: 2010Q4

REPORT INFORMATION
  Report Type: 
  Country: None (occurrence: None)
  Receive Date: 20101222
  Receipt Date: 20101216
  Transmission Date: 20110411
  Serious: Yes (Hospitalization)
  Sender: FDA-Public Use
  Company Number: US-US-EMD SERONO, INC.-230933J10USA

PATIENT
  Sex: Female

DRUGS (5)
  1. REBIF [Suspect]
     Indication: MULTIPLE SCLEROSIS
     Route: 058
     Dates: start: 20020101, end: 20100801
  2. BACLOFEN [Concomitant]
     Indication: MULTIPLE SCLEROSIS
  3. BACLOFEN [Concomitant]
     Route: 065
  4. FERROUS SULFATE [Concomitant]
     Indication: ANAEMIA
  5. MOTRIN [Concomitant]
     Indication: PAIN

REACTIONS (9)
  - ARTHRALGIA [None]
  - FEELING ABNORMAL [None]
  - GAIT DISTURBANCE [None]
  - INFLUENZA LIKE ILLNESS [None]
  - INSOMNIA [None]
  - RED BLOOD CELL COUNT DECREASED [None]
  - SOMNOLENCE [None]
  - URINARY TRACT INFECTION [None]
  - WHITE BLOOD CELL COUNT DECREASED [None]
